FAERS Safety Report 17723758 (Version 2)
Quarter: 2020Q2

REPORT INFORMATION
  Report Type: Spontaneous
  Country: AU (occurrence: AU)
  Receive Date: 20200429
  Receipt Date: 20200528
  Transmission Date: 20200714
  Serious: Yes (Other)
  Sender: FDA-Public Use
  Company Number: AU-JNJFOC-20200432557

PATIENT
  Age: 27 Year
  Sex: Female

DRUGS (5)
  1. MAVENCLAD [Suspect]
     Active Substance: CLADRIBINE
     Indication: MULTIPLE SCLEROSIS
     Dosage: TWO TABLETS (20 MG) A DAY ON DAYS 1 TO 3
     Route: 048
     Dates: start: 20180627
  2. TOPAMAX [Suspect]
     Active Substance: TOPIRAMATE
     Indication: MIGRAINE
     Route: 048
     Dates: start: 201810, end: 2018
  3. MAVENCLAD [Suspect]
     Active Substance: CLADRIBINE
     Route: 048
     Dates: start: 20190924, end: 20190928
  4. MAVENCLAD [Suspect]
     Active Substance: CLADRIBINE
     Dosage: 1 TABLET (10 MG) A DAY ON DAYS 4 AND 5
     Route: 048
     Dates: end: 20180701
  5. MAVENCLAD [Suspect]
     Active Substance: CLADRIBINE
     Dosage: 7 TABLETS (EACH OF 10 MG)
     Route: 048
     Dates: start: 20180724, end: 20180728

REACTIONS (2)
  - Migraine [Not Recovered/Not Resolved]
  - Optic nerve injury [Recovered/Resolved]
